FAERS Safety Report 4303401-5 (Version None)
Quarter: 2004Q1

REPORT INFORMATION
  Report Type: 
  Country: None (occurrence: None)
  Receive Date: 20040220
  Receipt Date: 20040211
  Transmission Date: 20041129
  Serious: Yes (Other)
  Sender: FDA-Public Use
  Company Number: GBWYE576512FEB04

PATIENT
  Age: 30 Year
  Sex: Female

DRUGS (3)
  1. MINOCIN [Suspect]
     Indication: ACNE
     Dosage: 100 MG 2X PER 1 DAY
     Dates: start: 20030901, end: 20040204
  2. MINOCIN [Suspect]
     Indication: DRY SKIN
     Dosage: 100 MG 2X PER 1 DAY
     Dates: start: 20030901, end: 20040204
  3. MINI-PILL (NORETHISTERONE) [Concomitant]

REACTIONS (5)
  - CHOLECYSTECTOMY [None]
  - GASTROINTESTINAL DISORDER [None]
  - MEDICATION ERROR [None]
  - PIGMENTATION DISORDER [None]
  - PRESCRIBED OVERDOSE [None]
